FAERS Safety Report 5624766-8 (Version None)
Quarter: 2008Q1

REPORT INFORMATION
  Report Type: 
  Country: None (occurrence: None)
  Receive Date: 20080208
  Receipt Date: 20080125
  Transmission Date: 20080703
  Serious: Yes (Other)
  Sender: FDA-Public Use
  Company Number: 8029430

PATIENT
  Age: 24 Month
  Sex: Male

DRUGS (5)
  1. KEPPRA [Suspect]
     Indication: PARTIAL SEIZURES
     Dosage: 60 MG/KG /D PO
     Route: 048
  2. KEPPRA [Suspect]
     Indication: PARTIAL SEIZURES
     Dosage: 40 MG/KG /D PO
     Route: 048
  3. CARBAMAZEPINE [Concomitant]
  4. CARBAMAZEPINE [Concomitant]
  5. OXCARBAZEPINE [Concomitant]

REACTIONS (4)
  - CONVULSION [None]
  - DISEASE RECURRENCE [None]
  - PSYCHOMOTOR HYPERACTIVITY [None]
  - SOMNOLENCE [None]
